FAERS Safety Report 24201578 (Version 1)
Quarter: 2024Q3

REPORT INFORMATION
  Report Type: Spontaneous
  Country: US (occurrence: US)
  Receive Date: 20240812
  Receipt Date: 20240812
  Transmission Date: 20241016
  Serious: No
  Sender: SANOFI AVENTIS
  Company Number: US-SA-SAC20240807000318

PATIENT
  Sex: Female

DRUGS (1)
  1. DUPIXENT [Suspect]
     Active Substance: DUPILUMAB
     Indication: Asthma
     Dosage: 400 MG, 1X
     Route: 058

REACTIONS (5)
  - Drug hypersensitivity [Recovering/Resolving]
  - Nasal pruritus [Recovering/Resolving]
  - Oral pruritus [Recovering/Resolving]
  - Abscess oral [Recovering/Resolving]
  - Eye swelling [Recovering/Resolving]
